FAERS Safety Report 17369750 (Version 1)
Quarter: 2020Q1

REPORT INFORMATION
  Report Type: Spontaneous
  Country: GB (occurrence: GB)
  Receive Date: 20200205
  Receipt Date: 20200205
  Transmission Date: 20200409
  Serious: Yes (Other)
  Sender: FDA-Public Use
  Company Number: GB-ABBVIE-20K-167-3262515-00

PATIENT
  Age: 52 Year
  Sex: Female

DRUGS (7)
  1. DESOGESTREL [Concomitant]
     Active Substance: DESOGESTREL
     Indication: PRODUCT USED FOR UNKNOWN INDICATION
  2. HUMIRA [Suspect]
     Active Substance: ADALIMUMAB
     Indication: RHEUMATOID ARTHRITIS
     Route: 058
  3. AMITRIPTYLINE [Concomitant]
     Active Substance: AMITRIPTYLINE
     Indication: PRODUCT USED FOR UNKNOWN INDICATION
  4. ZOPICLONE [Concomitant]
     Active Substance: ZOPICLONE
     Indication: PRODUCT USED FOR UNKNOWN INDICATION
  5. IMRALDI [Suspect]
     Active Substance: ADALIMUMAB
     Indication: RHEUMATOID ARTHRITIS
     Route: 051
     Dates: start: 20190327, end: 20191123
  6. QUININE BISULFATE [Concomitant]
     Active Substance: QUININE BISULFATE
     Indication: PRODUCT USED FOR UNKNOWN INDICATION
  7. FULTIUM-D3 [Concomitant]
     Active Substance: CHOLECALCIFEROL
     Indication: PRODUCT USED FOR UNKNOWN INDICATION

REACTIONS (3)
  - Invasive ductal breast carcinoma [Not Recovered/Not Resolved]
  - Product substitution issue [Unknown]
  - Breast mass [Not Recovered/Not Resolved]

NARRATIVE: CASE EVENT DATE: 201909
